FAERS Safety Report 4881362-8 (Version None)
Quarter: 2006Q1

REPORT INFORMATION
  Report Type: 
  Country: None (occurrence: None)
  Receive Date: 20060111
  Receipt Date: 20060111
  Transmission Date: 20060701
  Serious: Yes (Other)
  Sender: FDA-Public Use
  Company Number: None

PATIENT
  Age: 52 Year
  Sex: Female
  Weight: 124.7392 kg

DRUGS (2)
  1. VICODIN [Suspect]
     Indication: BREAST CANCER
     Dosage: 5/500 ONE PO Q 4
     Route: 048
     Dates: start: 20050601
  2. VICODIN [Suspect]
     Indication: NEUROPATHY
     Dosage: 5/500 ONE PO Q 4
     Route: 048
     Dates: start: 20050601

REACTIONS (1)
  - VOMITING [None]
